FAERS Safety Report 8582063-5 (Version None)
Quarter: 2012Q3

REPORT INFORMATION
  Report Type: 
  Country: None (occurrence: None)
  Receive Date: 20120809
  Receipt Date: 20120803
  Transmission Date: 20120928
  Serious: Yes (Hospitalization)
  Sender: FDA-Public Use
  Company Number: US-PFIZER INC-2012189281

PATIENT
  Age: 84 Year
  Sex: Female
  Weight: 33.107 kg

DRUGS (2)
  1. REVATIO [Suspect]
     Dosage: 20 MG, 3X/DAY
  2. REVATIO [Suspect]
     Indication: CHRONIC OBSTRUCTIVE PULMONARY DISEASE
     Dosage: 20 MG, 3X/DAY
     Dates: start: 20100917, end: 20120530

REACTIONS (3)
  - UNDERWEIGHT [None]
  - PAIN [None]
  - GASTROINTESTINAL DISORDER [None]
